FAERS Safety Report 25884623 (Version 1)
Quarter: 2025Q4

REPORT INFORMATION
  Report Type: Spontaneous
  Country: CN (occurrence: CN)
  Receive Date: 20251006
  Receipt Date: 20251006
  Transmission Date: 20260117
  Serious: Yes (Other)
  Sender: BAUSCH AND LOMB
  Company Number: CN-BAUSCH-BH-2025-018159

PATIENT
  Age: 69 Year
  Sex: Female

DRUGS (18)
  1. DEXAMETHASONE [Suspect]
     Active Substance: DEXAMETHASONE
     Indication: Acute promyelocytic leukaemia
     Route: 065
  2. DEXAMETHASONE [Suspect]
     Active Substance: DEXAMETHASONE
     Indication: Differentiation syndrome
  3. DEXAMETHASONE [Suspect]
     Active Substance: DEXAMETHASONE
     Indication: Prophylaxis
  4. TRETINOIN [Suspect]
     Active Substance: TRETINOIN
     Indication: Acute promyelocytic leukaemia
     Route: 065
  5. TRETINOIN [Suspect]
     Active Substance: TRETINOIN
     Indication: Acute monocytic leukaemia
  6. TRETINOIN [Suspect]
     Active Substance: TRETINOIN
     Indication: Acute monocytic leukaemia
  7. TETRAARSENIC TETRASULFIDE [Suspect]
     Active Substance: TETRAARSENIC TETRASULFIDE
     Indication: Acute promyelocytic leukaemia
     Route: 048
  8. IDARUBICIN [Suspect]
     Active Substance: IDARUBICIN
     Indication: Acute promyelocytic leukaemia
     Route: 065
  9. ARSENIC TRIOXIDE [Suspect]
     Active Substance: ARSENIC TRIOXIDE
     Indication: Acute promyelocytic leukaemia
     Dosage: CHEMOTHERAPY REGIMENS
     Route: 065
  10. ARSENIC TRIOXIDE [Suspect]
     Active Substance: ARSENIC TRIOXIDE
     Indication: Acute monocytic leukaemia
  11. ARSENIC TRIOXIDE [Suspect]
     Active Substance: ARSENIC TRIOXIDE
     Indication: Acute monocytic leukaemia
  12. SORAFENIB [Suspect]
     Active Substance: SORAFENIB
     Indication: Acute promyelocytic leukaemia
     Dosage: CHEMOTHERAPY REGIMENS
     Route: 065
  13. SORAFENIB [Suspect]
     Active Substance: SORAFENIB
     Indication: Acute monocytic leukaemia
  14. SORAFENIB [Suspect]
     Active Substance: SORAFENIB
     Indication: Acute monocytic leukaemia
  15. ALL- TRANS RETINOIC ACID [Concomitant]
     Indication: Acute promyelocytic leukaemia
  16. DEXAMETHASONE [Concomitant]
     Active Substance: DEXAMETHASONE
     Indication: Acute promyelocytic leukaemia
     Dosage: CHEMOTHERAPY REGIMENS
  17. HYDROXYUREA [Concomitant]
     Active Substance: HYDROXYUREA
     Indication: Acute promyelocytic leukaemia
     Dosage: CHEMOTHERAPY REGIMENS
  18. IDARUBICIN [Concomitant]
     Active Substance: IDARUBICIN
     Indication: Acute promyelocytic leukaemia
     Dosage: CHEMOTHERAPY REGIMENS

REACTIONS (2)
  - Therapy non-responder [Unknown]
  - Treatment noncompliance [Unknown]
